FAERS Safety Report 24959482 (Version 1)
Quarter: 2025Q1

REPORT INFORMATION
  Report Type: Spontaneous
  Country: SG (occurrence: SG)
  Receive Date: 20250212
  Receipt Date: 20250212
  Transmission Date: 20250408
  Serious: Yes (Hospitalization)
  Sender: ROCHE
  Company Number: SG-ROCHE-10000201290

PATIENT
  Age: 53 Year
  Sex: Female

DRUGS (1)
  1. PHESGO [Suspect]
     Active Substance: HYALURONIDASE-ZZXF\PERTUZUMAB\TRASTUZUMAB
     Indication: Breast cancer
     Route: 065

REACTIONS (4)
  - Escherichia infection [Unknown]
  - Diarrhoea [Unknown]
  - Arthralgia [Unknown]
  - Decreased appetite [Unknown]
